FAERS Safety Report 14329310 (Version 2)
Quarter: 2018Q4

REPORT INFORMATION
  Report Type: Spontaneous
  Country: US (occurrence: US)
  Receive Date: 20171227
  Receipt Date: 20181004
  Transmission Date: 20190204
  Serious: Yes (Hospitalization)
  Sender: FDA-Public Use
  Company Number: US-PFIZER INC-2017542403

PATIENT
  Age: 80 Year
  Sex: Female
  Weight: 86.17 kg

DRUGS (22)
  1. ENABLEX [Concomitant]
     Active Substance: DARIFENACIN HYDROBROMIDE
     Dosage: 15 MG, AS NEEDED
  2. ALLEGRA [Concomitant]
     Active Substance: FEXOFENADINE HYDROCHLORIDE
     Dosage: 180 MG, 1X/DAY (AM)
  3. SLOW MAG [Concomitant]
     Active Substance: MAGNESIUM CHLORIDE
     Dosage: 1 DF, 3X/DAY
  4. NEUROQUEL [Concomitant]
     Dosage: UNK UNK, 1X/DAY (DAILY)
  5. AUSTRALIAN DREAM PAIN RELIEVING ARTHRITIS [Concomitant]
     Active Substance: HISTAMINE DIHYDROCHLORIDE
     Dosage: UNK UNK, AS NEEDED
  6. DIOVAN [Concomitant]
     Active Substance: VALSARTAN
     Dosage: 160 MG, 2X/DAY (ONE IN AM + ONE AT SUPPER)
  7. DOFETILIDE. [Suspect]
     Active Substance: DOFETILIDE
     Indication: ATRIAL FIBRILLATION
     Dosage: 250 UG, UNK
  8. ASPIRIN. [Concomitant]
     Active Substance: ASPIRIN
     Dosage: 81 MG, 1X/DAY (DAILY IN AM)
  9. NORVASC [Concomitant]
     Active Substance: AMLODIPINE BESYLATE
     Dosage: 5MG -1 DAILY IN P.M. AT SUPPER+ 1/2 TAB IN AM
  10. CALTRATE 600+D [Concomitant]
     Dosage: UNK UNK, 2X/DAY (ONE IN AM + ONE AT SUPPER)
  11. TIKOSYN [Concomitant]
     Active Substance: DOFETILIDE
     Dosage: 250 UG, 2X/DAY (1EVERY12 HRS)
  12. PRILOSEC [Concomitant]
     Active Substance: OMEPRAZOLE MAGNESIUM
     Dosage: 20 MG, 1X/DAY (DAILY IN A.M.)
  13. TYLENOL [Concomitant]
     Active Substance: ACETAMINOPHEN
     Dosage: UNK UNK, AS NEEDED
  14. XARELTO [Concomitant]
     Active Substance: RIVAROXABAN
     Indication: CARDIAC DISORDER
     Dosage: 15 MG, 1X/DAY (AT SUPPER)
  15. GABAPENTIN. [Concomitant]
     Active Substance: GABAPENTIN
     Dosage: 300 MG, 1X/DAY (DAILY IN P.M.BEDTIME)
  16. LOPRESSOR [Concomitant]
     Active Substance: METOPROLOL TARTRATE
     Dosage: 25 MG, 2X/DAY (1EVERY12 HRS)
  17. NEUROGEN [Concomitant]
     Dosage: UNK UNK, AS NEEDED
  18. CENTRUM SILVER [Concomitant]
     Active Substance: MINERALS\VITAMINS
     Dosage: UNK UNK, 1X/DAY (DAILY-IN AM)
  19. TRICOR [Concomitant]
     Active Substance: FENOFIBRATE
     Dosage: 145 MG, UNK (DAILY IN A.M.- MON. WEDS. FRI)
  20. ALPHA LIPOIC ACID [Concomitant]
     Active Substance: .ALPHA.-LIPOIC ACID
     Dosage: 300 MG, 2X/DAY (ONE IN AM + ONE AT SUPPER)
  21. TYLENOL ARTHRITIS PAIN [Concomitant]
     Active Substance: ACETAMINOPHEN
     Dosage: 1300 MG, 1X/DAY (IN A.M)
  22. STARLIX [Concomitant]
     Active Substance: NATEGLINIDE
     Dosage: 120 MG, 3X/DAY (BEFORE EACH MEAL)

REACTIONS (3)
  - Drug ineffective [Unknown]
  - Feeling abnormal [Not Recovered/Not Resolved]
  - Heart rate increased [Not Recovered/Not Resolved]

NARRATIVE: CASE EVENT DATE: 2015
